FAERS Safety Report 7363501-2 (Version None)
Quarter: 2011Q1

REPORT INFORMATION
  Report Type: 
  Country: None (occurrence: None)
  Receive Date: 20110321
  Receipt Date: 20110311
  Transmission Date: 20110831
  Serious: Yes (Other)
  Sender: FDA-Public Use
  Company Number: GB-BRISTOL-MYERS SQUIBB COMPANY-15601925

PATIENT
  Age: 68 Year
  Sex: Male
  Weight: 83 kg

DRUGS (2)
  1. ONGLYZA [Suspect]
     Indication: TYPE 2 DIABETES MELLITUS
     Dosage: CUMULATIVE DOSE:5.03 UNDEFINED
     Route: 048
     Dates: start: 20110207, end: 20110213
  2. MAALOX [Concomitant]

REACTIONS (5)
  - ANAPHYLACTIC REACTION [None]
  - FEELING ABNORMAL [None]
  - ABDOMINAL DISCOMFORT [None]
  - MALAISE [None]
  - ASTHENIA [None]
